FAERS Safety Report 20096880 (Version 2)
Quarter: 2022Q1

REPORT INFORMATION
  Report Type: Spontaneous
  Country: US (occurrence: US)
  Receive Date: 20211122
  Receipt Date: 20220216
  Transmission Date: 20220423
  Serious: No
  Sender: FDA-Public Use
  Company Number: US-PFIZER INC-202101113305

PATIENT
  Age: 77 Year
  Sex: Female

DRUGS (1)
  1. IBRANCE [Suspect]
     Active Substance: PALBOCICLIB
     Indication: Breast cancer female
     Dosage: 75 MG

REACTIONS (5)
  - Neoplasm progression [Unknown]
  - Spinal pain [Unknown]
  - Abnormal behaviour [Unknown]
  - Pain [Recovering/Resolving]
  - Asthma [Unknown]
